FAERS Safety Report 6824586-2 (Version None)
Quarter: 2010Q3

REPORT INFORMATION
  Report Type: 
  Country: None (occurrence: None)
  Receive Date: 20100708
  Receipt Date: 20061102
  Transmission Date: 20110219
  Serious: No
  Sender: FDA-Public Use
  Company Number: US-PFIZER INC-2006138651

PATIENT
  Sex: Female
  Weight: 77.11 kg

DRUGS (13)
  1. CHANTIX [Suspect]
     Indication: SMOKING CESSATION THERAPY
     Route: 048
     Dates: start: 20061001
  2. ZOLOFT [Concomitant]
     Route: 048
  3. PROCHLORPERAZINE [Concomitant]
     Route: 048
  4. MICARDIS [Concomitant]
     Route: 048
  5. PRILOSEC [Concomitant]
     Route: 048
  6. ALL OTHER THERAPEUTIC PRODUCTS [Concomitant]
     Route: 048
  7. GLYBURIDE [Concomitant]
     Route: 048
  8. VYTORIN [Concomitant]
     Route: 048
  9. METHOTREXATE [Concomitant]
     Route: 048
  10. CLOPIDOGREL BISULFATE [Concomitant]
     Route: 048
  11. METOPROLOL [Concomitant]
     Route: 048
  12. ASPIRIN [Concomitant]
     Route: 048
  13. WARFARIN SODIUM [Concomitant]
     Route: 048

REACTIONS (2)
  - DIARRHOEA [None]
  - NAUSEA [None]
